FAERS Safety Report 6779376-6 (Version None)
Quarter: 2010Q2

REPORT INFORMATION
  Report Type: 
  Country: None (occurrence: None)
  Receive Date: 20100618
  Receipt Date: 20100610
  Transmission Date: 20101027
  Serious: Yes (Hospitalization, Other)
  Sender: FDA-Public Use
  Company Number: PHHY2010FR39136

PATIENT
  Sex: Female

DRUGS (12)
  1. CIBACEN [Suspect]
     Dosage: UNK
     Route: 048
     Dates: end: 20100422
  2. EURELIX [Suspect]
     Dosage: UNK
     Route: 048
     Dates: end: 20100422
  3. BISOPROLOL [Concomitant]
     Route: 048
  4. IPERTEN [Concomitant]
     Route: 048
  5. RIVOTRIL [Concomitant]
     Route: 048
  6. LANSOPRAZOLE [Concomitant]
     Route: 048
  7. PYOSTACINE [Concomitant]
     Route: 048
  8. ATARAX [Concomitant]
     Route: 048
  9. STRUCTUM [Concomitant]
     Route: 048
  10. ALPRAZOLAM [Concomitant]
     Route: 048
  11. DI-ANTALVIC [Concomitant]
     Route: 048
  12. NABUCOX [Concomitant]
     Route: 048

REACTIONS (12)
  - ASTHENIA [None]
  - BLOOD PRESSURE DECREASED [None]
  - DECREASED APPETITE [None]
  - DEHYDRATION [None]
  - DYSURIA [None]
  - ESCHERICHIA URINARY TRACT INFECTION [None]
  - FALL [None]
  - PYREXIA [None]
  - RENAL FAILURE ACUTE [None]
  - RHABDOMYOLYSIS [None]
  - TACHYPNOEA [None]
  - URINARY TRACT INFECTION BACTERIAL [None]
